FAERS Safety Report 4576018-5 (Version None)
Quarter: 2005Q1

REPORT INFORMATION
  Report Type: 
  Country: None (occurrence: None)
  Receive Date: 20050127
  Receipt Date: 20041004
  Transmission Date: 20050727
  Serious: No
  Sender: FDA-Public Use
  Company Number: USA041080012

PATIENT
  Age: 14 Year
  Sex: Male
  Weight: 67 kg

DRUGS (2)
  1. STRATTERA [Suspect]
     Indication: DISTURBANCE IN ATTENTION
     Dosage: 60 MG
     Dates: start: 20040913
  2. CENTRUM [Concomitant]

REACTIONS (2)
  - FATIGUE [None]
  - SLUGGISHNESS [None]
